FAERS Safety Report 7797205-9 (Version None)
Quarter: 2011Q4

REPORT INFORMATION
  Report Type: 
  Country: None (occurrence: None)
  Receive Date: 20111005
  Receipt Date: 20110921
  Transmission Date: 20120403
  Serious: Yes (Hospitalization, Other)
  Sender: FDA-Public Use
  Company Number: PHHY2011FR80155

PATIENT
  Sex: Male

DRUGS (10)
  1. FUROSEMIDE [Concomitant]
     Dosage: 40 MG, QD
  2. ALLOPURINOL [Concomitant]
     Dosage: 400 MG, DAILY
  3. FUROSEMIDE [Concomitant]
     Dosage: 500 MG, DAILY
     Route: 042
     Dates: start: 20110810
  4. PREVISCAN [Concomitant]
     Dosage: 10 MG, QD
  5. PREVISCAN [Concomitant]
     Dosage: 15 MG, DAILY
     Dates: start: 20110814
  6. OMEPRAZOLE [Concomitant]
     Dosage: DAILY20 MG, UNK
  7. AMLODIPINE [Concomitant]
     Dosage: 20 MG, QD
  8. VALSARTAN [Suspect]
     Dosage: 160 MG, QD
     Route: 048
     Dates: end: 20110810
  9. OMEPRAZOLE [Concomitant]
     Dosage: 40 MG, QD
  10. ACETAMINOPHEN [Concomitant]
     Dosage: 1.5 G, DAILY

REACTIONS (15)
  - NEPHROPATHY [None]
  - DYSPNOEA EXERTIONAL [None]
  - BLOOD CREATINE INCREASED [None]
  - OVERWEIGHT [None]
  - RENAL ATROPHY [None]
  - FACE OEDEMA [None]
  - BREATH SOUNDS ABNORMAL [None]
  - USE OF ACCESSORY RESPIRATORY MUSCLES [None]
  - CREATININE RENAL CLEARANCE DECREASED [None]
  - OEDEMA PERIPHERAL [None]
  - DYSPNOEA AT REST [None]
  - LOCALISED OEDEMA [None]
  - RENAL FAILURE [None]
  - WEIGHT DECREASED [None]
  - CREPITATIONS [None]
